FAERS Safety Report 7244997-3 (Version None)
Quarter: 2011Q1

REPORT INFORMATION
  Report Type: 
  Country: None (occurrence: None)
  Receive Date: 20110118
  Receipt Date: 20110107
  Transmission Date: 20110831
  Serious: Yes (Death, Other)
  Sender: FDA-Public Use
  Company Number: 2007-03030

PATIENT
  Age: 75 Year
  Sex: Female
  Weight: 44 kg

DRUGS (7)
  1. ALLOPURINOL [Concomitant]
  2. VELCADE [Suspect]
     Indication: MULTIPLE MYELOMA
     Dosage: 1.66 MG, INTRAVENOUS ; 1.28 MG, INTRAVENOUS
     Route: 042
     Dates: start: 20070427, end: 20070430
  3. VELCADE [Suspect]
     Indication: MULTIPLE MYELOMA
     Dosage: 1.66 MG, INTRAVENOUS ; 1.28 MG, INTRAVENOUS
     Route: 042
     Dates: start: 20070405, end: 20070415
  4. ACTONEL [Concomitant]
  5. URALYT (MAGNESIUM PHOSPHATE, ARNICA EXTRACT, RUBIA TINCTORUM, ECHINACE [Concomitant]
  6. METHYCOBAL (MECOBALAMIN) [Concomitant]
  7. KYTRIL [Concomitant]

REACTIONS (9)
  - BLOOD LACTATE DEHYDROGENASE INCREASED [None]
  - NAUSEA [None]
  - NEOPLASM MALIGNANT [None]
  - HYPOAESTHESIA [None]
  - PYREXIA [None]
  - VOMITING [None]
  - MULTIPLE MYELOMA [None]
  - NEUTROPHIL COUNT DECREASED [None]
  - PLATELET COUNT DECREASED [None]
